FAERS Safety Report 4431995-8 (Version None)
Quarter: 2004Q3

REPORT INFORMATION
  Report Type: 
  Country: None (occurrence: None)
  Receive Date: 20040819
  Receipt Date: 20040816
  Transmission Date: 20050211
  Serious: Yes (Death)
  Sender: FDA-Public Use
  Company Number: KII-2002-0001847

PATIENT
  Sex: Female

DRUGS (1)
  1. OXYCONTIN [Suspect]
     Indication: CANCER PAIN
     Dosage: 40 MG, ORAL
     Route: 048

REACTIONS (6)
  - CONDITION AGGRAVATED [None]
  - DYSPHAGIA [None]
  - GENERAL PHYSICAL HEALTH DETERIORATION [None]
  - MEDICATION ERROR [None]
  - PAIN EXACERBATED [None]
  - PELVIC NEOPLASM [None]
